FAERS Safety Report 25428015 (Version 1)
Quarter: 2025Q2

REPORT INFORMATION
  Report Type: Spontaneous
  Country: US (occurrence: None)
  Receive Date: 20250612
  Receipt Date: 20250612
  Transmission Date: 20250717
  Serious: Yes (Hospitalization)
  Sender: FDA-CTU
  Company Number: None

PATIENT
  Age: 71 Year
  Sex: Male
  Weight: 66.7 kg

DRUGS (2)
  1. CARBOPLATIN [Suspect]
     Active Substance: CARBOPLATIN
     Dates: end: 20221025
  2. TAXOL [Suspect]
     Active Substance: PACLITAXEL
     Dates: end: 20221025

REACTIONS (7)
  - Pneumonia [None]
  - Haemoglobin decreased [None]
  - Blood alkaline phosphatase increased [None]
  - Blood culture positive [None]
  - Sepsis [None]
  - Therapy interrupted [None]
  - Vascular device infection [None]

NARRATIVE: CASE EVENT DATE: 20221028
